FAERS Safety Report 11114808 (Version 1)
Quarter: 2015Q2

REPORT INFORMATION
  Report Type: Spontaneous
  Country: CA (occurrence: None)
  Receive Date: 20150513
  Receipt Date: 20150513
  Transmission Date: 20150821
  Serious: Yes (Hospitalization, Other)
  Sender: FDA-Public Use
  Company Number: ADR-2015-00924

PATIENT
  Age: 64 Year
  Sex: Female
  Weight: 69 kg

DRUGS (30)
  1. CELLCEPT [Suspect]
     Active Substance: MYCOPHENOLATE MOFETIL\MYCOPHENOLATE MOFETIL HYDROCHLORIDE
  2. NASONEX [Suspect]
     Active Substance: MOMETASONE FUROATE
  3. BACLOFEN. [Suspect]
     Active Substance: BACLOFEN
  4. VITAMIN C [Suspect]
     Active Substance: ASCORBIC ACID
  5. WARFARIN SODIUM. [Suspect]
     Active Substance: WARFARIN SODIUM
  6. VITAMIN B12 [Suspect]
     Active Substance: CYANOCOBALAMIN
  7. FUROSEMIDE. [Suspect]
     Active Substance: FUROSEMIDE
  8. ATIVAN [Suspect]
     Active Substance: LORAZEPAM
  9. IMMUNOGLOBULIN HUMAN [Suspect]
     Active Substance: HUMAN IMMUNOGLOBULIN G
  10. LYRICA [Suspect]
     Active Substance: PREGABALIN
  11. POTASSIUM CHLORIDE. [Suspect]
     Active Substance: POTASSIUM CHLORIDE
  12. ZANTAC [Suspect]
     Active Substance: RANITIDINE HYDROCHLORIDE
  13. SULFATRIM [Suspect]
     Active Substance: SULFAMETHOXAZOLE\TRIMETHOPRIM
  14. DOCUSATE SODIUM. [Suspect]
     Active Substance: DOCUSATE SODIUM
  15. MELATONIN [Suspect]
     Active Substance: MELATONIN
  16. PREDNISONE. [Suspect]
     Active Substance: PREDNISONE
  17. ACIDOPHILUS [Suspect]
     Active Substance: LACTOBACILLUS ACIDOPHILUS
  18. VITAMIN B COMPLEX [Suspect]
     Active Substance: CYANOCOBALAMIN\DEXPANTHENOL\NIACINAMIDE\PYRIDOXINE HYDROCHLORIDE\RIBOFLAVIN 5^-PHOSPHATE SODIUM\THIAMINE HYDROCHLORIDE\VITAMIN B COMPLEX
  19. LORATADINE. [Suspect]
     Active Substance: LORATADINE
  20. BACLOFEN. [Suspect]
     Active Substance: BACLOFEN
  21. HYDROMORPHONE [Suspect]
     Active Substance: HYDROMORPHONE
  22. SENOKOT (DOCUSATE SODIUM, SENNOSIDE A PLUS B) [Suspect]
     Active Substance: DOCUSATE SODIUM\SENNOSIDES A AND B
  23. ALENDRONATE (ALENDRONIC ACID) TABLET [Suspect]
     Active Substance: ALENDRONIC ACID
  24. TIZANIDINE HYDROCHLORIDE. [Suspect]
     Active Substance: TIZANIDINE HYDROCHLORIDE
  25. DULOXETINE HYDROCHLORIDE. [Suspect]
     Active Substance: DULOXETINE HYDROCHLORIDE
  26. NORTRIPTYLINE [Suspect]
     Active Substance: NORTRIPTYLINE
  27. IMODIUM [Suspect]
     Active Substance: LOPERAMIDE HYDROCHLORIDE
  28. SENNOSIDES. [Suspect]
     Active Substance: SENNOSIDES
  29. FISH OIL [Suspect]
     Active Substance: FISH OIL
  30. NOVO HYDRAZIDE [Suspect]
     Active Substance: HYDROCHLOROTHIAZIDE

REACTIONS (4)
  - Pneumonia aspiration [None]
  - Coma [None]
  - Gastrooesophageal reflux disease [None]
  - Somnolence [None]
